FAERS Safety Report 6651737-5 (Version None)
Quarter: 2010Q1

REPORT INFORMATION
  Report Type: 
  Country: None (occurrence: None)
  Receive Date: 20100325
  Receipt Date: 20100322
  Transmission Date: 20100710
  Serious: Yes (Hospitalization, Other)
  Sender: FDA-Public Use
  Company Number: US-ROXANE LABORATORIES, INC.-2010-RO-00310RO

PATIENT
  Age: 31 Year
  Sex: Female

DRUGS (4)
  1. CITALOPRAM HYDROBROMIDE [Suspect]
     Dosage: 40 MG
     Route: 048
  2. TOPIRAMATE [Suspect]
     Indication: MIGRAINE
     Dosage: 45 MG
     Route: 048
  3. DEPAKOTE [Suspect]
     Indication: MANIA
     Dosage: 1000 MG
     Route: 048
  4. QUETIAPINE [Suspect]
     Dosage: 100 MG
     Route: 048

REACTIONS (2)
  - HYPERAMMONAEMIC ENCEPHALOPATHY [None]
  - MANIA [None]
